FAERS Safety Report 4316090-0 (Version None)
Quarter: 2004Q1

REPORT INFORMATION
  Report Type: 
  Country: None (occurrence: None)
  Receive Date: 20040312
  Receipt Date: 20040306
  Transmission Date: 20041129
  Serious: Yes (Other)
  Sender: FDA-Public Use
  Company Number: US-BRISTOL-MYERS SQUIBB COMPANY-12529731

PATIENT
  Age: 31 Year
  Sex: Female

DRUGS (1)
  1. METFORMIN HCL [Suspect]
     Route: 048
     Dates: start: 20000101, end: 20030601

REACTIONS (3)
  - ALOPECIA [None]
  - GINGIVAL HYPOPLASIA [None]
  - PHARYNGEAL MASS [None]
